FAERS Safety Report 4356102-1 (Version None)
Quarter: 2004Q2

REPORT INFORMATION
  Report Type: 
  Country: None (occurrence: None)
  Receive Date: 20040511
  Receipt Date: 20040317
  Transmission Date: 20050107
  Serious: Yes (Life-Threatening, Other)
  Sender: FDA-Public Use
  Company Number: JP-GLAXOSMITHKLINE-B0327086A

PATIENT
  Age: 70 Year
  Sex: Female

DRUGS (3)
  1. PAXIL [Suspect]
     Indication: DEPRESSION
     Dosage: 10MG SINGLE DOSE
     Route: 048
     Dates: start: 20040303, end: 20040303
  2. MORPHINE HYDROCHLORIDE [Suspect]
     Indication: CANCER PAIN
     Dosage: 360MG TWICE PER DAY
     Route: 048
     Dates: start: 20040225, end: 20040309
  3. VOLTAREN [Concomitant]
     Route: 054

REACTIONS (8)
  - DYSTONIA [None]
  - HALLUCINATION, AUDITORY [None]
  - HYPERHIDROSIS [None]
  - MYOCLONUS [None]
  - RESPIRATORY DEPRESSION [None]
  - SEROTONIN SYNDROME [None]
  - THERAPEUTIC AGENT TOXICITY [None]
  - TREMOR [None]
